FAERS Safety Report 10683185 (Version 1)
Quarter: 2014Q4

REPORT INFORMATION
  Report Type: Spontaneous
  Country: SE (occurrence: SE)
  Receive Date: 20141230
  Receipt Date: 20141230
  Transmission Date: 20150529
  Serious: Yes (Hospitalization, Other)
  Sender: FDA-Public Use
  Company Number: SE-ASTRAZENECA-2014SE98361

PATIENT
  Age: 88 Year
  Sex: Female

DRUGS (20)
  1. SPASMOFEN SUPPOSITORIUM [Concomitant]
  2. ATORVASTATIN KRKA [Concomitant]
  3. ORSTANORM [Concomitant]
  4. KALCIPOS-D [Concomitant]
     Active Substance: CALCIUM CARBONATE\CHOLECALCIFEROL
     Dosage: 500 MG/400 IE
  5. MIRTAZAPIN [Suspect]
     Active Substance: MIRTAZAPINE
     Route: 065
  6. MOVICOL [Concomitant]
     Active Substance: POLYETHYLENE GLYCOL 3350\POTASSIUM CHLORIDE\SODIUM BICARBONATE\SODIUM CHLORIDE
     Dosage: AS NECESSARY
     Route: 048
  7. OXYNORM [Concomitant]
     Active Substance: OXYCODONE HYDROCHLORIDE
  8. PREDNISOLON [Concomitant]
     Active Substance: PREDNISOLONE
  9. PRIMPERAN [Concomitant]
     Active Substance: METOCLOPRAMIDE HYDROCHLORIDE
     Dosage: AS NECESSARY
  10. SAROTEN [Suspect]
     Active Substance: AMITRIPTYLINE
     Route: 065
  11. BEHEPAN [Concomitant]
     Active Substance: HYDROXOCOBALAMIN
  12. LAKTULOS [Concomitant]
     Dosage: 670 MG/ML
     Route: 048
  13. ALENDRONAT ACCORD [Concomitant]
  14. DENTAN [Concomitant]
     Active Substance: SODIUM FLUORIDE
  15. OMEPRAZOL BLUEFISH [Concomitant]
  16. INOLAXOL [Concomitant]
  17. ATACAND PLUS [Suspect]
     Active Substance: CANDESARTAN CILEXETIL\HYDROCHLOROTHIAZIDE
     Route: 048
  18. OXYCONTIN [Concomitant]
     Active Substance: OXYCODONE HYDROCHLORIDE
  19. ALVEDON [Concomitant]
     Active Substance: ACETAMINOPHEN
     Dosage: AS NECESSARY
  20. POSTAFEN [Concomitant]
     Active Substance: BUCLIZINE HYDROCHLORIDE

REACTIONS (2)
  - Pneumonia [Unknown]
  - Hyponatraemia [Recovered/Resolved]

NARRATIVE: CASE EVENT DATE: 20141030
